FAERS Safety Report 9485085 (Version 2)
Quarter: 2013Q3

REPORT INFORMATION
  Report Type: Spontaneous
  Country: US (occurrence: US)
  Receive Date: 20130828
  Receipt Date: 20130828
  Transmission Date: 20140515
  Serious: No
  Sender: FDA-Public Use
  Company Number: US-ABBOTT-12P-163-0969809-00

PATIENT
  Sex: Male
  Weight: 83.54 kg

DRUGS (3)
  1. ANDROGEL 1.62% [Suspect]
     Indication: BLOOD TESTOSTERONE DECREASED
     Dosage: 1 PUMP PER DAY
     Route: 061
     Dates: start: 2012, end: 201307
  2. ANDROGEL 1.62% [Suspect]
     Dosage: 2 PUMPS/DAY
     Route: 061
     Dates: start: 201307
  3. ANDROGEL 1% [Suspect]
     Indication: BLOOD TESTOSTERONE DECREASED
     Dosage: 5 GRAM PACKET, 1 IN 1 DAY
     Route: 061
     Dates: start: 2011, end: 20120708

REACTIONS (6)
  - Erectile dysfunction [Not Recovered/Not Resolved]
  - Nocturia [Not Recovered/Not Resolved]
  - Blood testosterone decreased [Not Recovered/Not Resolved]
  - Haemoglobin increased [Not Recovered/Not Resolved]
  - Herpes zoster [Recovered/Resolved]
  - Drug ineffective [Unknown]
